FAERS Safety Report 5314476-9 (Version None)
Quarter: 2007Q2

REPORT INFORMATION
  Report Type: 
  Country: None (occurrence: None)
  Receive Date: 20070430
  Receipt Date: 20070430
  Transmission Date: 20071010
  Serious: No
  Sender: FDA-Public Use
  Company Number: None

PATIENT
  Age: 44 Year
  Sex: Male
  Weight: 122.4712 kg

DRUGS (1)
  1. AMLODIPINE [Suspect]
     Indication: HYPERTENSION
     Dosage: 5MG DAILY PO
     Route: 048
     Dates: start: 20070405, end: 20070423

REACTIONS (6)
  - BLOOD PRESSURE INCREASED [None]
  - FEELING ABNORMAL [None]
  - HEADACHE [None]
  - MIGRAINE [None]
  - PHARMACEUTICAL PRODUCT COMPLAINT [None]
  - THERAPEUTIC RESPONSE UNEXPECTED WITH DRUG SUBSTITUTION [None]
